FAERS Safety Report 16508266 (Version 1)
Quarter: 2019Q3

REPORT INFORMATION
  Report Type: Spontaneous
  Country: EE (occurrence: EE)
  Receive Date: 20190702
  Receipt Date: 20190702
  Transmission Date: 20191004
  Serious: Yes (Other)
  Sender: FDA-Public Use
  Company Number: EE-ROCHE-2346809

PATIENT
  Sex: Male
  Weight: 81 kg

DRUGS (10)
  1. CYCLOPHOSPHAMIDE. [Concomitant]
     Active Substance: CYCLOPHOSPHAMIDE
  2. CYTARABINE. [Concomitant]
     Active Substance: CYTARABINE
  3. PREDNISOLONE. [Concomitant]
     Active Substance: PREDNISOLONE
  4. CISPLATIN. [Concomitant]
     Active Substance: CISPLATIN
  5. GEMCITABINE. [Concomitant]
     Active Substance: GEMCITABINE
  6. VINCRISTINE [Concomitant]
     Active Substance: VINCRISTINE
  7. DEXAMETHASONE. [Concomitant]
     Active Substance: DEXAMETHASONE
  8. RITUXIMAB. [Suspect]
     Active Substance: RITUXIMAB
     Indication: DIFFUSE LARGE B-CELL LYMPHOMA
     Route: 065
     Dates: start: 20180223, end: 20180225
  9. DOXORUBICIN [Concomitant]
     Active Substance: DOXORUBICIN
  10. OXALIPLATIN. [Concomitant]
     Active Substance: OXALIPLATIN

REACTIONS (2)
  - Diffuse large B-cell lymphoma recurrent [Unknown]
  - Thrombocytopenia [Unknown]
